FAERS Safety Report 4262073-9 (Version None)
Quarter: 2004Q1

REPORT INFORMATION
  Report Type: 
  Country: None (occurrence: None)
  Receive Date: 20040102
  Receipt Date: 20031218
  Transmission Date: 20041129
  Serious: Yes (Hospitalization)
  Sender: FDA-Public Use
  Company Number: SE-GLAXOSMITHKLINE-B0318184A

PATIENT
  Age: 43 Year
  Sex: Male

DRUGS (5)
  1. LAMICTAL [Suspect]
     Dosage: 25MG PER DAY
     Route: 048
     Dates: start: 20020922, end: 20020925
  2. VITAMIN B12/FOLIC ACID [Concomitant]
  3. PAROXETINE HCL [Concomitant]
     Dosage: 20MG PER DAY
  4. LITHIUM SULPHATE [Concomitant]
     Dosage: 42MG PER DAY
  5. TRIMEPRAZINE TARTRATE [Concomitant]
     Dosage: 40MGML PER DAY
     Route: 048

REACTIONS (4)
  - DIZZINESS [None]
  - HYPOAESTHESIA [None]
  - POLYNEUROPATHY [None]
  - SYNCOPE [None]
